FAERS Safety Report 23463291 (Version 1)
Quarter: 2024Q1

REPORT INFORMATION
  Report Type: Spontaneous
  Country: US (occurrence: US)
  Receive Date: 20240131
  Receipt Date: 20240131
  Transmission Date: 20240409
  Serious: No
  Sender: FDA-Public Use
  Company Number: US-SA-SAC20240125000141

PATIENT
  Age: 43 Year
  Sex: Male

DRUGS (2)
  1. ALTUVIIIO [Suspect]
     Active Substance: EFANESOCTOCOG ALFA
     Indication: Factor VIII deficiency
     Dosage: 3000 IU, QW (3263 UNITS/VIAL, 4 VIALS. INFUSE ONE 3263 UNIT VIAL AND ONE 525 UNIT VIAL. (3788 UNITS
     Route: 042
     Dates: start: 20230810
  2. ALTUVIIIO [Suspect]
     Active Substance: EFANESOCTOCOG ALFA
     Dosage: 3750 U, QW (TARGET DOSE OF 3750 UNITS (+/-10%) 525 UNITS/VIAL, 4 VIALS. INFUSE ONE 3263 UNIT VIAL AN
     Route: 042

REACTIONS (2)
  - Mobility decreased [Not Recovered/Not Resolved]
  - Pain [Not Recovered/Not Resolved]
